FAERS Safety Report 6624644-1 (Version None)
Quarter: 2010Q1

REPORT INFORMATION
  Report Type: 
  Country: None (occurrence: None)
  Receive Date: 20100310
  Receipt Date: 20091005
  Transmission Date: 20100710
  Serious: No
  Sender: FDA-Public Use
  Company Number: US-BIOGENIDEC-2009BI032066

PATIENT
  Sex: Female

DRUGS (2)
  1. AVONEX [Suspect]
     Indication: MULTIPLE SCLEROSIS
     Route: 030
     Dates: start: 20010512, end: 20031231
  2. AVONEX [Suspect]
     Route: 030
     Dates: start: 20060928, end: 20090120

REACTIONS (2)
  - DYSPNOEA [None]
  - GASTRIC ULCER [None]
